FAERS Safety Report 5613709-9 (Version None)
Quarter: 2008Q1

REPORT INFORMATION
  Report Type: 
  Country: None (occurrence: None)
  Receive Date: 20080205
  Receipt Date: 20080125
  Transmission Date: 20080703
  Serious: Yes (Death)
  Sender: FDA-Public Use
  Company Number: JP-NOVOPROD-255652

PATIENT

DRUGS (9)
  1. NOVOSEVEN [Suspect]
     Indication: HAEMORRHAGE
     Dosage: 4.8 MG, SINGLE
     Route: 042
     Dates: start: 20060711, end: 20060712
  2. NOVOSEVEN [Suspect]
     Dosage: 4.8 MG, SINGLE
     Route: 042
     Dates: start: 20060711, end: 20060712
  3. NOVOSEVEN [Suspect]
     Dosage: 4.8 MG, SINGLE
     Route: 042
     Dates: start: 20060712, end: 20060712
  4. NOVOSEVEN [Suspect]
     Dosage: 4.8 UNK, UNK
     Dates: start: 20060726, end: 20060726
  5. PREDONINE                          /00016203/ [Concomitant]
     Dosage: 60 MG, QD
     Route: 042
     Dates: start: 20060709, end: 20060727
  6. SOLU-MEDROL [Concomitant]
     Dosage: 1 G FOR 3 DAYS
     Route: 042
     Dates: start: 20060711, end: 20060713
  7. GASTER [Concomitant]
     Dosage: 40 MG, QD
     Route: 042
     Dates: start: 20060714, end: 20060726
  8. ADONA [Concomitant]
     Dosage: 25 MG, QD
     Route: 042
     Dates: start: 20060714, end: 20060726
  9. TRANSAMIN [Concomitant]
     Indication: HAEMORRHAGE SUBCUTANEOUS
     Dosage: 1 G, QD
     Route: 042
     Dates: start: 20060714, end: 20060726

REACTIONS (1)
  - PNEUMONIA [None]
